FAERS Safety Report 8565727 (Version 5)
Quarter: 2012Q4

REPORT INFORMATION
  Report Type: Spontaneous
  Country: US (occurrence: None)
  Receive Date: 20120511
  Receipt Date: 20121002
  Transmission Date: 20130627
  Serious: Yes (Hospitalization, Other)
  Sender: FDA-Public Use
  Company Number: 2012-000515

PATIENT
  Age: 52 Year
  Sex: Female

DRUGS (11)
  1. ACTONEL [Suspect]
     Indication: OSTEOPOROSIS
     Route: 048
     Dates: start: 200509, end: 200605
  2. BONIVA [Suspect]
     Indication: OSTEOPOROSIS
     Route: 048
     Dates: start: 20060601
  3. FOSAMAX [Suspect]
     Indication: OSTEOPOROSIS
     Route: 048
     Dates: start: 2002, end: 2004
  4. FOSAMAX [Suspect]
     Indication: OSTEOPOROSIS
     Route: 048
     Dates: start: 200807, end: 2008
  5. CRESTOR [Concomitant]
  6. LIPITOR [Concomitant]
  7. PREVACID [Concomitant]
  8. MULTIVITAMIN /00097801/ (ASCORBIC ACID, CALCIUM PANTOTHENATE, ERGOCALCIFEROL, NICOTINAMIDE, PYRIDOXI [Concomitant]
  9. PRILOSEC [Concomitant]
  10. CLOTRIMAZOLE [Concomitant]
  11. NEXIUM /01479303/ (ESOMEPRAZOLE SODIUM) [Concomitant]

REACTIONS (15)
  - FEMUR FRACTURE [None]
  - Pathological fracture [None]
  - ARTHRALGIA [None]
  - PAIN IN EXTREMITY [None]
  - Fracture nonunion [None]
  - GASTROOESOPHAGEAL REFLUX DISEASE [None]
  - Greenstick fracture [None]
  - LIGAMENT SPRAIN [None]
  - BONE LESION [None]
  - VITAMIN D DECREASED [None]
  - N-TELOPEPTIDE URINE DECREASED [None]
  - BACK PAIN [None]
  - BONE GRAFT [None]
  - BURSITIS [None]
  - VERTEBRAL FORAMINAL STENOSIS [None]
